FAERS Safety Report 20411308 (Version 2)
Quarter: 2022Q1

REPORT INFORMATION
  Report Type: Report from Study
  Country: US (occurrence: US)
  Receive Date: 20220201
  Receipt Date: 20220303
  Transmission Date: 20220423
  Serious: Yes (Other)
  Sender: FDA-Public Use
  Company Number: US-MYLANLABS-2022M1003868

PATIENT
  Age: 48 Year
  Sex: Female
  Weight: 108.86 kg

DRUGS (2)
  1. CLOZAPINE [Suspect]
     Active Substance: CLOZAPINE
     Indication: Product used for unknown indication
     Dosage: UNK
  2. IRON [Concomitant]
     Active Substance: IRON
     Dosage: 143 MILLIGRAM, QD (IRON SLOW RELEASE)
     Route: 048

REACTIONS (5)
  - Neutropenia [Unknown]
  - Immature granulocyte count increased [Not Recovered/Not Resolved]
  - Red blood cell count decreased [Recovered/Resolved]
  - Haemoglobin decreased [Recovered/Resolved]
  - Haematocrit decreased [Recovered/Resolved]

NARRATIVE: CASE EVENT DATE: 20211122
